FAERS Safety Report 4563838-6 (Version None)
Quarter: 2005Q1

REPORT INFORMATION
  Report Type: 
  Country: None (occurrence: None)
  Receive Date: 20050125
  Receipt Date: 20050112
  Transmission Date: 20050727
  Serious: Yes (Hospitalization)
  Sender: FDA-Public Use
  Company Number: FR-SHR-04-021547

PATIENT
  Age: 48 Year
  Sex: Female
  Weight: 67.9942 kg

DRUGS (3)
  1. BETAFERON (INTERFERON BETA-1B)INJECTION 250 UG [Suspect]
     Indication: MULTIPLE SCLEROSIS
     Dosage: 250 UG EVERY 2 D SUBCUTANEOUS
     Route: 058
     Dates: start: 20001201
  2. PROZAC [Concomitant]
  3. CELEBREX [Concomitant]

REACTIONS (1)
  - DIABETIC KETOACIDOSIS [None]
